FAERS Safety Report 19716429 (Version 2)
Quarter: 2021Q4

REPORT INFORMATION
  Report Type: Report from Study
  Country: AU (occurrence: AU)
  Receive Date: 20210819
  Receipt Date: 20211027
  Transmission Date: 20220303
  Serious: Yes (Hospitalization)
  Sender: FDA-Public Use
  Company Number: AU-AMGEN-AUSCT2021126871

PATIENT
  Age: 38 Year
  Sex: Female
  Weight: 44.9 kg

DRUGS (88)
  1. BLINATUMOMAB [Suspect]
     Active Substance: BLINATUMOMAB
     Indication: B precursor type acute leukaemia
     Dosage: UNK
     Route: 065
  2. DEXAMETHASONE [Suspect]
     Active Substance: DEXAMETHASONE
     Indication: B precursor type acute leukaemia
     Dosage: 8 MILLIGRAM, QD
     Route: 048
     Dates: start: 20210505, end: 20210507
  3. DEXAMETHASONE [Suspect]
     Active Substance: DEXAMETHASONE
     Dosage: 8 MILLIGRAM, QD
     Route: 048
     Dates: start: 20210602, end: 20210604
  4. DEXAMETHASONE [Suspect]
     Active Substance: DEXAMETHASONE
     Dosage: 8 MILLIGRAM, QD
     Route: 048
     Dates: start: 20210623, end: 20210625
  5. DEXAMETHASONE [Suspect]
     Active Substance: DEXAMETHASONE
     Dosage: UNK (TOTAL DOSE: 260 MG)
     Route: 042
     Dates: start: 20210722
  6. DEXAMETHASONE [Suspect]
     Active Substance: DEXAMETHASONE
     Dosage: 8 MILLIGRAM
     Route: 042
  7. VINCRISTINE [Suspect]
     Active Substance: VINCRISTINE
     Indication: B precursor type acute leukaemia
     Dosage: UNK (TOTAL DOSE: 6 MG)
     Route: 042
     Dates: start: 20210729
  8. VINCRISTINE [Suspect]
     Active Substance: VINCRISTINE
     Dosage: 2 MILLIGRAM
     Route: 042
  9. DOXORUBICIN [Suspect]
     Active Substance: DOXORUBICIN
     Indication: B precursor type acute leukaemia
     Dosage: UNK (TOTAL DOSE: 120 MG)
     Route: 042
     Dates: start: 20210729
  10. DOXORUBICIN [Suspect]
     Active Substance: DOXORUBICIN
     Dosage: 40 MILLIGRAM
     Route: 042
  11. PEG/L-ASPARAGINASE [Suspect]
     Active Substance: PEGASPARGASE
     Indication: B precursor type acute leukaemia
     Dosage: 1300 UNIT
     Route: 065
     Dates: start: 20210722
  12. CEFEPIME [Concomitant]
     Active Substance: CEFEPIME HYDROCHLORIDE
     Indication: Stomatitis
     Dosage: 2 GRAM, TID
     Route: 042
     Dates: start: 20210202, end: 20210208
  13. CEFEPIME [Concomitant]
     Active Substance: CEFEPIME HYDROCHLORIDE
     Indication: Febrile neutropenia
     Dosage: 2 GRAM, TID
     Dates: start: 20210815, end: 20210822
  14. ACETAMINOPHEN [Concomitant]
     Active Substance: ACETAMINOPHEN
     Indication: Stomatitis
     Dosage: UNK, AS NECESSARY (1G, 4G/24 HR)
     Dates: start: 20210202
  15. ACETAMINOPHEN [Concomitant]
     Active Substance: ACETAMINOPHEN
     Indication: Pain
     Dosage: 1 GRAM
     Dates: start: 20210815
  16. ACETAMINOPHEN [Concomitant]
     Active Substance: ACETAMINOPHEN
     Dosage: 1 GRAM
     Route: 048
     Dates: start: 20210428, end: 20210428
  17. ACETAMINOPHEN [Concomitant]
     Active Substance: ACETAMINOPHEN
     Dosage: 1 GRAM
     Route: 048
     Dates: start: 20210715, end: 20210715
  18. ACETAMINOPHEN [Concomitant]
     Active Substance: ACETAMINOPHEN
     Dosage: 1 GRAM
     Route: 048
     Dates: start: 20211021, end: 20211021
  19. ALLOPURINOL [Concomitant]
     Active Substance: ALLOPURINOL
     Indication: Prophylaxis
     Dosage: 300 MILLIGRAM, QD
     Dates: start: 20210202, end: 20210210
  20. SULFAMETHOXAZOLE\TRIMETHOPRIM [Concomitant]
     Active Substance: SULFAMETHOXAZOLE\TRIMETHOPRIM
     Indication: Prophylaxis
     Dosage: UNK UNK, BID (800MG/160MG)
     Dates: start: 20210208, end: 20210419
  21. VALACYCLOVIR HYDROCHLORIDE [Concomitant]
     Active Substance: VALACYCLOVIR HYDROCHLORIDE
     Indication: Prophylaxis
     Dosage: 500 MILLIGRAM, QD
     Dates: start: 20210205, end: 20211012
  22. VALACYCLOVIR HYDROCHLORIDE [Concomitant]
     Active Substance: VALACYCLOVIR HYDROCHLORIDE
     Dosage: 125 MILLIGRAM, BID
     Route: 042
     Dates: start: 20210816, end: 20210823
  23. ONDANSETRON [Concomitant]
     Active Substance: ONDANSETRON
     Indication: Nausea
     Dosage: UNK UNK, TID (4-8 MG)
     Dates: start: 20210202
  24. ONDANSETRON [Concomitant]
     Active Substance: ONDANSETRON
     Indication: Vomiting
  25. TEMAZEPAM [Concomitant]
     Active Substance: TEMAZEPAM
     Indication: Insomnia
     Dosage: 5 MILLIGRAM, QD (PRN)
     Dates: start: 20210202, end: 20210206
  26. TEMAZEPAM [Concomitant]
     Active Substance: TEMAZEPAM
     Dosage: 10 MILLIGRAM, QD (PRN)
     Dates: start: 20210207, end: 20211012
  27. POLYETHYLENE GLYCOL 3350\POTASSIUM CHLORIDE\SODIUM BICARBONATE\SODIUM [Concomitant]
     Active Substance: POLYETHYLENE GLYCOL 3350\POTASSIUM CHLORIDE\SODIUM BICARBONATE\SODIUM CHLORIDE
     Indication: Constipation
     Dosage: UNK UNK, BID (1 TO 2 PACKS)
     Dates: start: 20210213, end: 20210213
  28. POLYETHYLENE GLYCOL 3350\POTASSIUM CHLORIDE\SODIUM BICARBONATE\SODIUM [Concomitant]
     Active Substance: POLYETHYLENE GLYCOL 3350\POTASSIUM CHLORIDE\SODIUM BICARBONATE\SODIUM CHLORIDE
     Dosage: UNK, TID (2 PACKS)
     Dates: start: 20210214, end: 20210218
  29. POLYETHYLENE GLYCOL 3350\POTASSIUM CHLORIDE\SODIUM BICARBONATE\SODIUM [Concomitant]
     Active Substance: POLYETHYLENE GLYCOL 3350\POTASSIUM CHLORIDE\SODIUM BICARBONATE\SODIUM CHLORIDE
     Dosage: UNK, BID (1-2 PACKS)
     Dates: start: 20210218, end: 20211012
  30. OMEPRAZOLE [Concomitant]
     Active Substance: OMEPRAZOLE
     Indication: Product used for unknown indication
     Dosage: 40 MILLIGRAM, QD
     Dates: start: 20210213, end: 20210226
  31. OMEPRAZOLE [Concomitant]
     Active Substance: OMEPRAZOLE
     Indication: Epigastric discomfort
     Dosage: 20 MILLIGRAM, QD
     Dates: start: 20210222, end: 20210222
  32. OMEPRAZOLE [Concomitant]
     Active Substance: OMEPRAZOLE
     Dosage: UNK
     Dates: start: 20210227, end: 20210302
  33. OLANZAPINE [Concomitant]
     Active Substance: OLANZAPINE
     Indication: Nausea
     Dosage: 5 MILLIGRAM, TID (PRN)
     Dates: start: 20210213, end: 20211012
  34. OLANZAPINE [Concomitant]
     Active Substance: OLANZAPINE
     Indication: Vomiting
  35. DOCUSATE SODIUM\SENNOSIDES A AND B [Concomitant]
     Active Substance: DOCUSATE SODIUM\SENNOSIDES A AND B
     Indication: Constipation
     Dosage: UNK UNK, BID (PRN)
     Dates: start: 20210213, end: 20211012
  36. GASTROGEL RANITIDINE [Concomitant]
     Indication: Reflux gastritis
     Dosage: 15 MILLILITER, TID (PRN)
     Dates: start: 20210213, end: 20210217
  37. GASTROGEL RANITIDINE [Concomitant]
     Indication: Epigastric discomfort
     Dosage: 20 MILLILITER, QD
     Dates: start: 20210220, end: 20210220
  38. GASTROGEL RANITIDINE [Concomitant]
     Dosage: 20 MILLILITER, QD
     Dates: start: 20210221, end: 20210221
  39. GASTROGEL RANITIDINE [Concomitant]
     Dosage: 15 MILLILITER, QID (PRN)
     Dates: start: 20210218, end: 20210224
  40. GASTROGEL RANITIDINE [Concomitant]
     Dosage: 20 MILLILITER
     Route: 048
     Dates: start: 20210428, end: 20210428
  41. OXYCODONE [Concomitant]
     Active Substance: OXYCODONE
     Indication: Pain
     Dosage: 5 MILLIGRAM, QD
     Dates: start: 20210214, end: 20210214
  42. OXYCODONE [Concomitant]
     Active Substance: OXYCODONE
     Dosage: UNK, AS NECESSARY (2.5-5MG)
     Dates: start: 20210214, end: 20210324
  43. PICOPREP [Concomitant]
     Active Substance: ANHYDROUS CITRIC ACID\MAGNESIUM OXIDE\SODIUM PICOSULFATE
     Indication: Constipation
     Dosage: UNK UNK, QD
     Dates: start: 20210214, end: 20210214
  44. PICOPREP [Concomitant]
     Active Substance: ANHYDROUS CITRIC ACID\MAGNESIUM OXIDE\SODIUM PICOSULFATE
     Dosage: UNK
     Dates: start: 20210310, end: 20210310
  45. LIGNOCAIN [Concomitant]
     Indication: Local anaesthesia
     Dosage: 5 MILLILITER
     Route: 058
     Dates: start: 20210215, end: 20210215
  46. LIGNOCAIN [Concomitant]
     Indication: Mucosal inflammation
     Dosage: UNK
     Dates: start: 20210218, end: 20210218
  47. LIGNOCAIN [Concomitant]
     Indication: Oral pain
     Dosage: 10 MILLILITER
     Dates: start: 20210308, end: 20210308
  48. LIGNOCAIN [Concomitant]
     Indication: Aspiration bone marrow
     Dosage: 10 MILLILITER
     Dates: start: 20210316, end: 20210316
  49. LIGNOCAIN [Concomitant]
     Dosage: 5 MILLILITER
     Dates: start: 20210413, end: 20210413
  50. LIGNOCAIN [Concomitant]
     Dosage: 10 MILLILITER
     Dates: start: 20210428, end: 20210428
  51. LIGNOCAIN [Concomitant]
     Dosage: 10 MILLILITER
     Dates: start: 20210505, end: 20210505
  52. LIGNOCAIN [Concomitant]
     Dosage: UNK
     Route: 058
     Dates: start: 20210715, end: 20210715
  53. LIGNOCAIN [Concomitant]
     Dosage: 15 MILLILITER (MAXIMUM 8 DROPS FOR 24 HOURS)
     Dates: start: 20210815, end: 20210923
  54. LIGNOCAIN [Concomitant]
     Dosage: 10 MILLILITER
     Route: 058
     Dates: start: 20211021, end: 20211021
  55. METHOXYFLURANE [Concomitant]
     Active Substance: METHOXYFLURANE
     Indication: Sedation
     Dosage: 3 MILLILITER
     Dates: start: 20210218, end: 20210218
  56. CYCLIZINE [Concomitant]
     Active Substance: CYCLIZINE
     Indication: Nausea
     Dosage: UNK UNK, AS NECESSARY (25-50 MG)
     Dates: start: 20210215, end: 20210324
  57. CYCLIZINE [Concomitant]
     Active Substance: CYCLIZINE
     Dosage: 50 MILLIGRAM
     Dates: start: 20210604, end: 20210604
  58. PANTOPRAZOLE [Concomitant]
     Active Substance: PANTOPRAZOLE
     Dosage: 20 MILLIGRAM, BID
     Dates: start: 20210302, end: 20210303
  59. PANTOPRAZOLE [Concomitant]
     Active Substance: PANTOPRAZOLE
     Dosage: 40 MILLIGRAM, BID
     Dates: start: 20210303, end: 20210324
  60. ENOXAPARIN SODIUM [Concomitant]
     Active Substance: ENOXAPARIN SODIUM
     Indication: Thrombosis
     Dosage: 40 MILLIGRAM, QD
     Dates: start: 20210206, end: 20210319
  61. POSACONAZOLE [Concomitant]
     Active Substance: POSACONAZOLE
     Indication: Prophylaxis
     Dosage: 300 MILLIGRAM, QD
     Dates: start: 20210306, end: 20210310
  62. FLEET ENEMA [Concomitant]
     Active Substance: SODIUM PHOSPHATE, DIBASIC\SODIUM PHOSPHATE, MONOBASIC
     Indication: Constipation
     Dosage: UNK
     Dates: start: 20210311, end: 20210311
  63. FLEET ENEMA [Concomitant]
     Active Substance: SODIUM PHOSPHATE, DIBASIC\SODIUM PHOSPHATE, MONOBASIC
     Dosage: UNK
     Dates: start: 20210313, end: 20210313
  64. ENOXAPARIN [Concomitant]
     Active Substance: ENOXAPARIN
     Indication: Thrombosis
     Dosage: 20 MILLIGRAM, QD
     Dates: start: 20210320, end: 20210323
  65. PENTAMIDINE [Concomitant]
     Active Substance: PENTAMIDINE
     Indication: Prophylaxis
     Dosage: 300 MILLIGRAM, Q4WK
     Dates: start: 20210430, end: 20211012
  66. METHOXYFLURANE [Concomitant]
     Active Substance: METHOXYFLURANE
     Indication: Sedation
     Dosage: UNK
     Dates: start: 20210308, end: 20210308
  67. METHOXYFLURANE [Concomitant]
     Active Substance: METHOXYFLURANE
     Dosage: 3 MILLILITER
     Dates: start: 20210428, end: 20210428
  68. METHOXYFLURANE [Concomitant]
     Active Substance: METHOXYFLURANE
     Dosage: 3 MILLILITER
     Dates: start: 20210715, end: 20210715
  69. METHOXYFLURANE [Concomitant]
     Active Substance: METHOXYFLURANE
     Dosage: 3 MILLILITER
     Dates: start: 20211021, end: 20211021
  70. FILGRASTIM [Concomitant]
     Active Substance: FILGRASTIM
     Indication: Prophylaxis
     Dosage: 300 MICROGRAM
     Dates: start: 20210312, end: 20210312
  71. FILGRASTIM [Concomitant]
     Active Substance: FILGRASTIM
     Indication: Febrile neutropenia
     Dosage: 300 MICROGRAM, QD
     Route: 058
     Dates: start: 20210817, end: 20210822
  72. FAMOTIDINE [Concomitant]
     Active Substance: FAMOTIDINE
     Indication: Gastrooesophageal reflux disease
     Dosage: 20 MILLIGRAM
     Dates: start: 20210312
  73. BISACODYL [Concomitant]
     Active Substance: BISACODYL
     Indication: Constipation
     Dosage: UNK (3 SACHETS)
     Dates: start: 20210313, end: 20210313
  74. VANCOMYCIN [Concomitant]
     Active Substance: VANCOMYCIN
     Indication: Clostridium difficile infection
     Dosage: 125 MILLIGRAM, QID
     Dates: start: 20210314, end: 20210327
  75. VANCOMYCIN [Concomitant]
     Active Substance: VANCOMYCIN
     Dosage: 12.5 MILLIGRAM, QID
     Route: 048
     Dates: start: 20210822, end: 20210901
  76. METOCLOPRAMIDE [Concomitant]
     Active Substance: METOCLOPRAMIDE
     Indication: Nausea
     Dosage: 10 MILLIGRAM, TID
     Dates: start: 20210315
  77. METOCLOPRAMIDE [Concomitant]
     Active Substance: METOCLOPRAMIDE
     Indication: Vomiting
  78. BUTYLSCOPOLAMINE BROMIDE [Concomitant]
     Active Substance: BUTYLSCOPOLAMINE BROMIDE
     Indication: Pain
     Dosage: 10 MILLIGRAM
     Dates: start: 20210304, end: 20210324
  79. DOMPERIDONE [Concomitant]
     Active Substance: DOMPERIDONE
     Indication: Nausea
     Dosage: 10 MILLIGRAM, TID
     Dates: start: 20210316, end: 20210324
  80. DOMPERIDONE [Concomitant]
     Active Substance: DOMPERIDONE
     Indication: Vomiting
  81. TRAMADOL [Concomitant]
     Active Substance: TRAMADOL
     Indication: Pain
     Dosage: 50 MILLIGRAM, AS NECESSARY (4 HRS)
     Dates: start: 20210317, end: 20210324
  82. BUTYLSCOPOLAMINE BROMIDE [Concomitant]
     Active Substance: BUTYLSCOPOLAMINE BROMIDE
     Indication: Abdominal pain
     Dosage: 10 MILLIGRAM, AS NECESSARY
     Dates: start: 20210313, end: 20210324
  83. THIAMINE [Concomitant]
     Active Substance: THIAMINE
     Indication: Product used for unknown indication
     Dosage: 300 MILLIGRAM
     Route: 042
     Dates: start: 20210319, end: 20210323
  84. THIAMINE [Concomitant]
     Active Substance: THIAMINE
     Dosage: 100 UNK
     Dates: start: 20210323, end: 20210324
  85. THIAMINE [Concomitant]
     Active Substance: THIAMINE
     Dosage: 300 MILLIGRAM, QD
     Route: 042
     Dates: start: 20210818, end: 20210823
  86. ESOMEPRAZOLE. [Concomitant]
     Active Substance: ESOMEPRAZOLE MAGNESIUM
     Indication: Gastrooesophageal reflux disease
     Dosage: 20 MILLIGRAM, BID
     Dates: start: 20210322, end: 20211012
  87. FLUCONAZOLE [Concomitant]
     Active Substance: FLUCONAZOLE
     Indication: Prophylaxis
     Dosage: 200 MILLIGRAM, QD
     Dates: start: 20210507, end: 20210721
  88. GAVISCON RELIEF [Concomitant]
     Indication: Reflux gastritis
     Dosage: 20 MILLILITER, TID
     Route: 048
     Dates: start: 20210518

REACTIONS (1)
  - Stomatitis [Recovered/Resolved]

NARRATIVE: CASE EVENT DATE: 20210815
